FAERS Safety Report 5900363-1 (Version None)
Quarter: 2008Q3

REPORT INFORMATION
  Report Type: 
  Country: None (occurrence: None)
  Receive Date: 20080926
  Receipt Date: 20080915
  Transmission Date: 20090109
  Serious: Yes (Other)
  Sender: FDA-Public Use
  Company Number: US-PFIZER INC-2008021146

PATIENT
  Sex: Female
  Weight: 100 kg

DRUGS (7)
  1. CHANTIX [Suspect]
     Indication: EX-TOBACCO USER
     Route: 048
     Dates: start: 20080201, end: 20080601
  2. AVAPRO [Concomitant]
  3. GLUCOPHAGE [Concomitant]
  4. VYTORIN [Concomitant]
  5. TYLENOL (CAPLET) [Concomitant]
  6. ACETYLSALICYLIC ACID SRT [Concomitant]
  7. XANAX [Concomitant]

REACTIONS (5)
  - ABASIA [None]
  - AORTIC ANEURYSM [None]
  - DEPRESSION [None]
  - INSOMNIA [None]
  - MORBID THOUGHTS [None]
